FAERS Safety Report 17674760 (Version 2)
Quarter: 2021Q4

REPORT INFORMATION
  Report Type: Spontaneous
  Country: CA (occurrence: CA)
  Receive Date: 20200416
  Receipt Date: 20211013
  Transmission Date: 20220304
  Serious: Yes (Disabling)
  Sender: FDA-Public Use
  Company Number: CA-BOEHRINGERINGELHEIM-2020-BI-019999

PATIENT
  Age: 53 Year
  Sex: Female

DRUGS (3)
  1. MICARDIS [Suspect]
     Active Substance: TELMISARTAN
     Indication: Product used for unknown indication
     Route: 065
  2. METOPROLOL [Suspect]
     Active Substance: METOPROLOL
     Indication: Product used for unknown indication
     Route: 065
  3. CALCITRIOL [Concomitant]
     Active Substance: CALCITRIOL
     Indication: Product used for unknown indication
     Route: 065

REACTIONS (26)
  - Cardiac flutter [Recovering/Resolving]
  - Peripheral arterial occlusive disease [Recovering/Resolving]
  - Pleuritic pain [Recovering/Resolving]
  - Ocular hyperaemia [Recovering/Resolving]
  - Sciatica [Recovering/Resolving]
  - Gastritis [Recovering/Resolving]
  - Dyspepsia [Recovering/Resolving]
  - Gingival disorder [Recovering/Resolving]
  - Hyperaesthesia teeth [Recovering/Resolving]
  - Tooth disorder [Recovering/Resolving]
  - Breath odour [Recovering/Resolving]
  - Muscle rigidity [Recovering/Resolving]
  - Musculoskeletal stiffness [Recovering/Resolving]
  - Musculoskeletal pain [Recovering/Resolving]
  - Muscle spasms [Recovering/Resolving]
  - Periarthritis [Recovering/Resolving]
  - Back pain [Recovering/Resolving]
  - Tooth fracture [Recovering/Resolving]
  - Reaction to excipient [Recovering/Resolving]
  - Heart rate irregular [Recovering/Resolving]
  - Blood creatine phosphokinase MB increased [Recovering/Resolving]
  - Blood uric acid increased [Recovering/Resolving]
  - Blood urea increased [Recovering/Resolving]
  - Glomerular filtration rate decreased [Recovering/Resolving]
  - Blood parathyroid hormone increased [Recovering/Resolving]
  - White blood cell count increased [Recovering/Resolving]
